FAERS Safety Report 19835304 (Version 1)
Quarter: 2021Q3

REPORT INFORMATION
  Report Type: Report from Study
  Country: AR (occurrence: AR)
  Receive Date: 20210916
  Receipt Date: 20210916
  Transmission Date: 20211014
  Serious: Yes (Other)
  Sender: FDA-Public Use
  Company Number: NVSC2021AR206496

PATIENT
  Sex: Female

DRUGS (2)
  1. ONBRIZE [Suspect]
     Active Substance: INDACATEROL MALEATE
     Indication: CHRONIC OBSTRUCTIVE PULMONARY DISEASE
     Dosage: 1 DF, QD (STARTED ABOUT 4 AGO AND STOPPED 3 YEARS AGO OR SO)
     Route: 055
  2. ENTRESTO [Suspect]
     Active Substance: SACUBITRIL\VALSARTAN
     Indication: CARDIAC FAILURE
     Dosage: 200 MG, QD (HALF OF 200 MG) (IN THE MORNING AND AT NIGHT)
     Route: 065

REACTIONS (4)
  - Wrong technique in product usage process [Unknown]
  - Hip fracture [Unknown]
  - Fall [Unknown]
  - Movement disorder [Unknown]
